FAERS Safety Report 8957820 (Version 1)
Quarter: 2012Q4

REPORT INFORMATION
  Report Type: 
  Country: US (occurrence: US)
  Receive Date: 20121211
  Receipt Date: 20121211
  Transmission Date: 20130627
  Serious: No
  Sender: FDA-Public Use
  Company Number: US-B.I. PHARMACEUTICALS,INC./RIDGEFIELD-2012-BI-02315BP

PATIENT
  Sex: Male

DRUGS (7)
  1. PRADAXA [Suspect]
     Indication: ATRIAL FIBRILLATION
     Dosage: 300 mg
     Route: 048
     Dates: start: 201210
  2. DIGOXIN [Concomitant]
     Indication: CARDIAC DISORDER
  3. GLIPIZIDE [Concomitant]
     Indication: DIABETES MELLITUS
  4. METOPROLOL [Concomitant]
     Indication: BLOOD PRESSURE
  5. LIPITOR [Concomitant]
     Indication: BLOOD CHOLESTEROL INCREASED
  6. COZAAR [Concomitant]
     Indication: BLOOD PRESSURE
  7. ALLOPURINOL [Concomitant]
     Indication: GOUT

REACTIONS (1)
  - Somnolence [Recovered/Resolved]
